FAERS Safety Report 7917166-9 (Version None)
Quarter: 2011Q4

REPORT INFORMATION
  Report Type: 
  Country: None (occurrence: None)
  Receive Date: 20111116
  Receipt Date: 20090210
  Transmission Date: 20120403
  Serious: Yes (Other)
  Sender: FDA-Public Use
  Company Number: US-ENDO PHARMACEUTICALS INC.-PRED20110104

PATIENT
  Sex: Female

DRUGS (1)
  1. PREDNISONE [Suspect]
     Indication: LIVER DISORDER
     Dosage: UNKNOWN
     Route: 065

REACTIONS (5)
  - DIABETES MELLITUS [None]
  - BONE LOSS [None]
  - WEIGHT INCREASED [None]
  - FLUID RETENTION [None]
  - SQUAMOUS CELL CARCINOMA [None]
